APPROVED DRUG PRODUCT: SILODOSIN
Active Ingredient: SILODOSIN
Strength: 8MG
Dosage Form/Route: CAPSULE;ORAL
Application: A213230 | Product #002 | TE Code: AB
Applicant: CREEKWOOD PHARMACEUTICALS LLC
Approved: Jan 3, 2022 | RLD: No | RS: No | Type: RX